FAERS Safety Report 9078716 (Version 1)
Quarter: 2013Q1

REPORT INFORMATION
  Report Type: Report from Study
  Country: US (occurrence: US)
  Receive Date: 20130130
  Receipt Date: 20130130
  Transmission Date: 20140127
  Serious: No
  Sender: FDA-Public Use
  Company Number: US-ABBOTT-12P-163-0967641-00

PATIENT
  Age: 50 Year
  Sex: Female

DRUGS (22)
  1. HUMIRA 40 MG/0.8 ML PEN [Suspect]
     Indication: RHEUMATOID ARTHRITIS
     Route: 058
     Dates: start: 20120405
  2. PREDNISONE [Concomitant]
     Indication: SARCOIDOSIS
     Dosage: 6MG DAILY
  3. PREDNISONE [Concomitant]
     Indication: ARTHRITIS
  4. ASACOL HD [Concomitant]
     Indication: COLITIS
     Dosage: 800MG THREE TIMES DAILY
  5. IMURAN [Concomitant]
     Indication: COLITIS
     Dosage: 50MG 2 TIMES DAILY
  6. LOPERAMIDE [Concomitant]
     Indication: COLITIS
     Dosage: 2.5MG DAILY
  7. BENTYL [Concomitant]
     Indication: COLITIS
     Dosage: 20MG 2 PILLS
  8. TINCTURE OF OPIUM [Concomitant]
     Indication: PRODUCT USED FOR UNKNOWN INDICATION
  9. FLEXERIL [Concomitant]
     Indication: PRODUCT USED FOR UNKNOWN INDICATION
     Dosage: 2MG DAILY
  10. CYMBALTA [Concomitant]
     Indication: DEPRESSION
  11. CYMBALTA [Concomitant]
     Indication: PAIN
  12. EFFEXOR [Concomitant]
     Indication: DEPRESSION
     Dosage: 150MG CAPSULE TWICE DAILY
  13. LORATIDINE [Concomitant]
     Indication: GASTROINTESTINAL DISORDER
  14. PROPANOLOL [Concomitant]
     Indication: MIGRAINE PROPHYLAXIS
     Dosage: 20MG DAILY
  15. RANTIDINE [Concomitant]
     Indication: PRODUCT USED FOR UNKNOWN INDICATION
     Dosage: 300MG TWICE DAILY
  16. PRILOSEC [Concomitant]
     Indication: GASTROOESOPHAGEAL REFLUX DISEASE
     Dosage: 20MG TWICE DAILY
  17. OPANA [Concomitant]
     Indication: PAIN
     Dosage: 30MG TWICE DAILY
  18. FROVA [Concomitant]
     Indication: MOUNTAIN SICKNESS ACUTE
     Dosage: 2.5MG  ONE DAILY
  19. EXCEDRIN [Concomitant]
     Indication: PAIN
     Dosage: 1-2 DAILY
  20. TYLENOL [Concomitant]
     Indication: PRODUCT USED FOR UNKNOWN INDICATION
     Dosage: ONE DAILY
  21. FLOVENT [Concomitant]
     Indication: DYSPNOEA
     Dosage: 2 PUFF DAILY
  22. ALUPENT [Concomitant]
     Indication: DYSPNOEA

REACTIONS (4)
  - Injection site pain [Recovered/Resolved]
  - Incorrect dose administered [Recovered/Resolved]
  - Injection site induration [Recovered/Resolved]
  - Device malfunction [Recovered/Resolved]
